FAERS Safety Report 26141151 (Version 1)
Quarter: 2025Q4

REPORT INFORMATION
  Report Type: Spontaneous
  Country: US (occurrence: None)
  Receive Date: 20251210
  Receipt Date: 20251210
  Transmission Date: 20260118
  Serious: Yes (Life-Threatening, Other)
  Sender: ENDO
  Company Number: US-ENDO USA, INC.-2025-002378

PATIENT
  Age: 78 Year
  Sex: Female

DRUGS (2)
  1. TRIOSTAT [Suspect]
     Active Substance: LIOTHYRONINE SODIUM
     Indication: Decompensated hypothyroidism
     Dosage: 5 MILLIGRAM, EVERY 8 HOURS
  2. LEVOTHYROXINE [Concomitant]
     Active Substance: LEVOTHYROXINE
     Indication: Decompensated hypothyroidism
     Dosage: 200 MICROGRAM, UNKNOWN

REACTIONS (2)
  - Supraventricular tachycardia [Unknown]
  - Hypotension [Unknown]
